FAERS Safety Report 7609153-5 (Version None)
Quarter: 2011Q3

REPORT INFORMATION
  Report Type: 
  Country: None (occurrence: None)
  Receive Date: 20110714
  Receipt Date: 20110706
  Transmission Date: 20111222
  Serious: Yes (Other)
  Sender: FDA-Public Use
  Company Number: US-BAYER-2011-022316

PATIENT
  Age: 30 Year
  Sex: Female
  Weight: 69.388 kg

DRUGS (2)
  1. MIRENA [Suspect]
     Dosage: 20 ?G, CONT
     Route: 015
     Dates: start: 20110208, end: 20110218
  2. MIRENA [Suspect]
     Dosage: 20 MCG/24HR, CONT
     Route: 015
     Dates: start: 20110301

REACTIONS (2)
  - PROCEDURAL COMPLICATION [None]
  - CERVICAL DYSPLASIA [None]
